FAERS Safety Report 11585792 (Version 1)
Quarter: 2015Q4

REPORT INFORMATION
  Report Type: Other
  Country: GB (occurrence: GB)
  Receive Date: 20151001
  Receipt Date: 20151001
  Transmission Date: 20160304
  Serious: Yes (Hospitalization)
  Sender: FDA-Public Use
  Company Number: GB-LINDE GAS NORTH AMERICA LLC-GB-LHC-2015128

PATIENT
  Age: 29 Year
  Sex: Female
  Weight: 40 kg

DRUGS (5)
  1. NITROUS OXIDE (GENERIC) [Suspect]
     Active Substance: NITROUS OXIDE
     Indication: PAIN
     Dates: start: 20150825, end: 20150825
  2. QUETIAPINE [Concomitant]
     Active Substance: QUETIAPINE
  3. GABAPENTIN. [Concomitant]
     Active Substance: GABAPENTIN
  4. OXYCODONE [Concomitant]
     Active Substance: OXYCODONE
  5. FENTANYL. [Concomitant]
     Active Substance: FENTANYL

REACTIONS (3)
  - Leukopenia [Not Recovered/Not Resolved]
  - Neutropenia [Recovering/Resolving]
  - Sepsis [Unknown]

NARRATIVE: CASE EVENT DATE: 20150901
